FAERS Safety Report 4720191-2 (Version None)
Quarter: 2005Q3

REPORT INFORMATION
  Report Type: 
  Country: None (occurrence: None)
  Receive Date: 20050719
  Receipt Date: 20050706
  Transmission Date: 20060218
  Serious: Yes (Other)
  Sender: FDA-Public Use
  Company Number: 2005JP001280

PATIENT
  Age: 38 Year
  Sex: Male

DRUGS (18)
  1. TACROLIMUS CAPSULES (TACROLIMUS) CAPSULE [Suspect]
     Indication: RENAL TRANSPLANT
     Dosage: ORAL
     Route: 048
     Dates: start: 20050617
  2. SORBITOL (SORBITOL) [Concomitant]
  3. MIRTAZAPINE [Concomitant]
  4. COLOXYL WITH SENNA (SENNOSIDE A+B, DOCUSATE SODIUM) [Concomitant]
  5. ATORVASTATIN 9ATORVASTATIN) [Concomitant]
  6. PERINDOPRIL (PERINDOPRIL) [Concomitant]
  7. SEPTRIN FORTE (SULFAMETHOXAZOLE, TRIMETHOPRIM) [Concomitant]
  8. ONDASETRON (ONDANSETRON) INJECTION [Concomitant]
  9. METOCLOPRAMIDE (METOCLOPRAMIDE) INJECTION [Concomitant]
  10. VALGANCICLOVIR (VALGANCICLOVIR) [Concomitant]
  11. PANTOPRAZOLE SODIUM [Concomitant]
  12. NIFEDIPINE [Concomitant]
  13. PRAZOSIN GITS [Concomitant]
  14. OMEPRAZOLE [Concomitant]
  15. VERAPAMIL [Concomitant]
  16. EPROSARTAN (EPROSARTAN) [Concomitant]
  17. VENTOLIN/00139502/(SALBUTAMOL SULFATE) [Concomitant]
  18. CEFAZOLIN [Concomitant]

REACTIONS (2)
  - CARDIAC ARREST [None]
  - COMPLICATIONS OF TRANSPLANTED KIDNEY [None]
